FAERS Safety Report 4365260-4 (Version None)
Quarter: 2004Q2

REPORT INFORMATION
  Report Type: 
  Country: None (occurrence: None)
  Receive Date: 20040525
  Receipt Date: 20040301
  Transmission Date: 20050107
  Serious: No
  Sender: FDA-Public Use
  Company Number: PHEH2004US00705

PATIENT
  Age: 60 Year
  Sex: Male
  Weight: 58.7 kg

DRUGS (5)
  1. ZELNORM [Suspect]
     Indication: IRRITABLE BOWEL SYNDROME
     Dosage: 3 MG, BID, ORAL
     Route: 048
     Dates: start: 20021107, end: 20021112
  2. DULCOLAX [Concomitant]
  3. METHADONE (METHADONE) [Concomitant]
  4. VALIUM [Concomitant]
  5. HUMULIN (INSULIN ISOPHANE, HUMAN BIOSYNTHETIC, INSULIN HUMAN) [Concomitant]

REACTIONS (1)
  - URINARY RETENTION [None]
